FAERS Safety Report 15531049 (Version 1)
Quarter: 2018Q4

REPORT INFORMATION
  Report Type: Report from Study
  Country: None (occurrence: US)
  Receive Date: 20181019
  Receipt Date: 20181019
  Transmission Date: 20190205
  Serious: Yes (Hospitalization, Other)
  Sender: FDA-Public Use
  Company Number: US-ABBVIE-18K-163-2474020-00

PATIENT
  Age: 63 Year
  Sex: Female
  Weight: 59.02 kg

DRUGS (22)
  1. POTASSIUM [Concomitant]
     Active Substance: POTASSIUM
     Indication: MINERAL SUPPLEMENTATION
  2. ZANAFLEX [Concomitant]
     Active Substance: TIZANIDINE HYDROCHLORIDE
     Indication: MULTIPLE SCLEROSIS
  3. VITAMIN D [Concomitant]
     Active Substance: CHOLECALCIFEROL
     Indication: VITAMIN SUPPLEMENTATION
  4. HUMIRA [Suspect]
     Active Substance: ADALIMUMAB
     Route: 058
     Dates: start: 20180912
  5. VITAMIN A [Concomitant]
     Active Substance: VITAMIN A
     Indication: VITAMIN SUPPLEMENTATION
  6. VENTOLIN [Concomitant]
     Active Substance: ALBUTEROL SULFATE
     Indication: ASTHMA
  7. OXYGEN. [Concomitant]
     Active Substance: OXYGEN
     Indication: ASTHMA
  8. VALIUM [Concomitant]
     Active Substance: DIAZEPAM
     Indication: ANXIETY
  9. LEXAPRO [Concomitant]
     Active Substance: ESCITALOPRAM OXALATE
     Indication: DEPRESSION
  10. VITAMIN B6 [Concomitant]
     Active Substance: PYRIDOXINE HYDROCHLORIDE
     Indication: VITAMIN SUPPLEMENTATION
  11. VITAMIN B12 [Concomitant]
     Active Substance: CYANOCOBALAMIN
     Indication: VITAMIN B COMPLEX DEFICIENCY
  12. FOLIC ACID. [Concomitant]
     Active Substance: FOLIC ACID
     Indication: VITAMIN SUPPLEMENTATION
  13. TOPAMAX [Concomitant]
     Active Substance: TOPIRAMATE
     Indication: MIGRAINE
  14. SPIRIVA [Concomitant]
     Active Substance: TIOTROPIUM BROMIDE MONOHYDRATE
     Indication: ASTHMA
  15. VALIUM [Concomitant]
     Active Substance: DIAZEPAM
     Indication: MULTIPLE SCLEROSIS
  16. HUMIRA [Suspect]
     Active Substance: ADALIMUMAB
     Indication: PSORIATIC ARTHROPATHY
     Route: 058
     Dates: start: 201707, end: 20180802
  17. METHOTREXATE. [Concomitant]
     Active Substance: METHOTREXATE
     Indication: PSORIATIC ARTHROPATHY
  18. DILAUDID [Concomitant]
     Active Substance: HYDROMORPHONE HYDROCHLORIDE
     Indication: COMPLEX REGIONAL PAIN SYNDROME
  19. VALIUM [Concomitant]
     Active Substance: DIAZEPAM
     Indication: MUSCLE SPASMS
  20. LEUKOVORIN [Concomitant]
     Active Substance: LEUCOVORIN SODIUM
     Indication: PSORIATIC ARTHROPATHY
  21. PREVACID [Concomitant]
     Active Substance: LANSOPRAZOLE
     Indication: GASTROOESOPHAGEAL REFLUX DISEASE
  22. MOVANTIK [Concomitant]
     Active Substance: NALOXEGOL OXALATE
     Indication: CONSTIPATION

REACTIONS (10)
  - Synovial cyst [Not Recovered/Not Resolved]
  - Osteoarthritis [Recovered/Resolved]
  - Post procedural swelling [Not Recovered/Not Resolved]
  - Haemoglobin decreased [Recovering/Resolving]
  - Hepatic enzyme increased [Unknown]
  - Joint lock [Not Recovered/Not Resolved]
  - Gait disturbance [Not Recovered/Not Resolved]
  - Procedural pain [Not Recovered/Not Resolved]
  - Chills [Not Recovered/Not Resolved]
  - Haematocrit decreased [Recovering/Resolving]

NARRATIVE: CASE EVENT DATE: 2017
